FAERS Safety Report 24270319 (Version 1)
Quarter: 2024Q3

REPORT INFORMATION
  Report Type: Report from Study
  Country: HU (occurrence: HU)
  Receive Date: 20240830
  Receipt Date: 20240830
  Transmission Date: 20241017
  Serious: Yes (Death)
  Sender: ABBVIE
  Company Number: HU-ABBVIE-5899477

PATIENT
  Sex: Female

DRUGS (4)
  1. CARBIDOPA\LEVODOPA [Suspect]
     Active Substance: CARBIDOPA\LEVODOPA
     Indication: Parkinson^s disease
     Dosage: MORNING DOSE: 2.2 ML; CONTINUOUS DOSE: 2.0 ML/HOUR; EXTRA DOSE: 1.5 ML
     Route: 050
     Dates: start: 20121105
  2. CARBIDOPA\LEVODOPA [Suspect]
     Active Substance: CARBIDOPA\LEVODOPA
  3. CLOZAPINE [Concomitant]
     Active Substance: CLOZAPINE
     Indication: Hallucination
     Dosage: FORM STRENGTH: 25 MG?FREQUENCY TEXT: 1 TABLET IN THE EVENING
     Route: 048
  4. RIVOTRIL [Concomitant]
     Active Substance: CLONAZEPAM
     Indication: Anxiety
     Dosage: 0.5 MILLIGRAM?FORM STRENGTH: 0.5 MG
     Route: 048

REACTIONS (5)
  - Cardiac failure [Fatal]
  - Immobile [Unknown]
  - Mental disorder [Unknown]
  - Parkinson^s disease [Unknown]
  - Weight decreased [Unknown]

NARRATIVE: CASE EVENT DATE: 20150101
